FAERS Safety Report 9670715 (Version 1)
Quarter: 2013Q4

REPORT INFORMATION
  Report Type: Spontaneous
  Country: FR (occurrence: FR)
  Receive Date: 20131106
  Receipt Date: 20131106
  Transmission Date: 20140711
  Serious: Yes (Hospitalization, Other)
  Sender: FDA-Public Use
  Company Number: FR-AMGEN-FRASP2013077372

PATIENT
  Age: 5 Month
  Sex: Male
  Weight: 2.07 kg

DRUGS (9)
  1. MIMPARA [Suspect]
     Indication: PRODUCT USED FOR UNKNOWN INDICATION
     Dosage: UNK
     Route: 064
     Dates: start: 20121019, end: 20121206
  2. INEXIUM                            /01479302/ [Concomitant]
     Dosage: 40
     Route: 064
  3. CACIT                              /00944201/ [Concomitant]
     Dosage: 1000
     Route: 064
  4. UVEDOSE [Concomitant]
     Dosage: 100000, QMO
     Route: 064
  5. LASILIX                            /00032601/ [Concomitant]
     Dosage: 125 MG, QD
     Route: 064
  6. RENVELA [Concomitant]
     Dosage: 800*4
     Route: 064
  7. BICARBONATE [Concomitant]
     Dosage: 2 G, UNK
     Route: 064
  8. KAYEXALATE [Concomitant]
     Dosage: 1 MEASURED SPOONFUL PER WEEK
     Route: 064
  9. EMLA                               /00675501/ [Concomitant]
     Dosage: UNK UNK, Q3WK
     Route: 064

REACTIONS (4)
  - Acute respiratory distress syndrome [Unknown]
  - Premature baby [Unknown]
  - Cardiac murmur [Unknown]
  - Cryptorchism [Unknown]
